FAERS Safety Report 5042977-X (Version None)
Quarter: 2006Q3

REPORT INFORMATION
  Report Type: 
  Country: None (occurrence: None)
  Receive Date: 20060705
  Receipt Date: 20060616
  Transmission Date: 20061208
  Serious: Yes (Hospitalization, Other)
  Sender: FDA-Public Use
  Company Number: FR-ABBOTT-06P-056-0336392-00

PATIENT
  Age: 60 Year
  Sex: Male

DRUGS (7)
  1. NORVIR [Suspect]
     Indication: ACQUIRED IMMUNODEFICIENCY SYNDROME
     Dates: start: 20060301
  2. SULFADIAZINE [Suspect]
     Indication: TOXOPLASMOSIS
     Route: 048
     Dates: start: 20060101
  3. BACTRIM [Suspect]
     Indication: TOXOPLASMOSIS
     Route: 048
     Dates: start: 20060101
  4. PYRIMETHAMINE TAB [Suspect]
     Indication: TOXOPLASMOSIS
     Route: 048
     Dates: start: 20060101
  5. AZITHROMYCIN [Suspect]
     Indication: TOXOPLASMOSIS
     Dates: start: 20060101
  6. LAMIVUDINE AND ZIDOVUDINE [Suspect]
     Indication: HIV INFECTION
     Route: 048
     Dates: start: 20060301, end: 20060515
  7. FOSAMPRENAVIR [Suspect]
     Indication: HIV INFECTION
     Route: 048
     Dates: start: 20060301

REACTIONS (3)
  - LEUKOERYTHROBLASTIC ANAEMIA [None]
  - LEUKOPENIA [None]
  - NEUTROPENIA [None]
